FAERS Safety Report 4636786-0 (Version None)
Quarter: 2005Q2

REPORT INFORMATION
  Report Type: 
  Country: None (occurrence: None)
  Receive Date: 20050414
  Receipt Date: 20050408
  Transmission Date: 20051028
  Serious: Yes (Hospitalization)
  Sender: FDA-Public Use
  Company Number: 163-20785-04100819

PATIENT
  Age: 73 Year
  Sex: Female

DRUGS (1)
  1. THALOMID [Suspect]
     Indication: MULTIPLE MYELOMA
     Dosage: 400 MG, DAILY; ORAL
     Route: 048
     Dates: start: 20040701, end: 20040701

REACTIONS (1)
  - RESPIRATORY FAILURE [None]
